FAERS Safety Report 7400035-0 (Version None)
Quarter: 2011Q2

REPORT INFORMATION
  Report Type: 
  Country: None (occurrence: None)
  Receive Date: 20110407
  Receipt Date: 20110329
  Transmission Date: 20111010
  Serious: Yes (Hospitalization)
  Sender: FDA-Public Use
  Company Number: US-JNJFOC-20110400728

PATIENT
  Age: 47 Year
  Sex: Female

DRUGS (1)
  1. NUCYNTA [Suspect]
     Indication: RADICULAR PAIN
     Route: 048

REACTIONS (1)
  - LOSS OF CONSCIOUSNESS [None]
